FAERS Safety Report 9495979 (Version 4)
Quarter: 2014Q2

REPORT INFORMATION
  Report Type: Spontaneous
  Country: BR (occurrence: BR)
  Receive Date: 20130904
  Receipt Date: 20140623
  Transmission Date: 20141212
  Serious: Yes (Other)
  Sender: FDA-Public Use
  Company Number: BR-PFIZER INC-2013086269

PATIENT
  Age: 65 Year
  Sex: Female
  Weight: 76 kg

DRUGS (7)
  1. XALATAN [Suspect]
     Indication: GLAUCOMA
     Dosage: 1 GTT (IN EACH EYE), 1X/DAY
     Route: 047
     Dates: start: 20060406
  2. XALATAN [Suspect]
     Dosage: 1 GTT (3UG) IN EACH EYE, 1X/DAY
     Route: 047
     Dates: start: 20130806, end: 20130820
  3. XALATAN [Suspect]
     Dosage: UNK
     Dates: end: 20130311
  4. XALATAN [Suspect]
     Dosage: 3 UG, 1 DROP IN EACH EYE ONCE A DAY
     Route: 047
  5. XALATAN [Suspect]
  6. SERUM PHYSIOLOGICAL [Suspect]
     Indication: EYE IRRIGATION
     Route: 047
  7. VYTORIN [Concomitant]
     Dosage: UNK

REACTIONS (12)
  - Glaucoma [Not Recovered/Not Resolved]
  - Product packaging quantity issue [Unknown]
  - Diabetes mellitus [Not Recovered/Not Resolved]
  - Blood pressure increased [Unknown]
  - Headache [Not Recovered/Not Resolved]
  - Eye irritation [Not Recovered/Not Resolved]
  - Eye movement disorder [Not Recovered/Not Resolved]
  - Eye pain [Unknown]
  - Labyrinthitis [Not Recovered/Not Resolved]
  - Fall [Unknown]
  - Depression [Not Recovered/Not Resolved]
  - Malaise [Not Recovered/Not Resolved]
